FAERS Safety Report 8455939-7 (Version None)
Quarter: 2012Q2

REPORT INFORMATION
  Report Type: 
  Country: None (occurrence: None)
  Receive Date: 20120621
  Receipt Date: 20120618
  Transmission Date: 20120825
  Serious: Yes (Hospitalization)
  Sender: FDA-Public Use
  Company Number: PHHY2012IT052066

PATIENT
  Age: 80 Year
  Sex: Female

DRUGS (10)
  1. SIMVASTATIN [Concomitant]
  2. TIMOLOL MALEATE [Concomitant]
  3. LORAZEPAM [Concomitant]
  4. CHLORTHALIDONE [Concomitant]
     Dosage: 25 MG, UNK
  5. TICLOPIDINE HCL [Suspect]
     Dosage: UNK
     Dates: end: 20110201
  6. ATENOLOL [Concomitant]
     Dosage: 100 MG, UNK
  7. TICLOPIDINE HCL [Suspect]
     Indication: CAROTID ARTERY STENOSIS
     Dosage: 250 MG, UNK
     Dates: end: 20110901
  8. METFORMIN HCL [Concomitant]
  9. GLICLAZIDE [Concomitant]
  10. PAROXETINE [Concomitant]

REACTIONS (2)
  - HYPERTENSIVE CRISIS [None]
  - SYSTOLIC HYPERTENSION [None]
